FAERS Safety Report 6719200-0 (Version None)
Quarter: 2010Q2

REPORT INFORMATION
  Report Type: 
  Country: None (occurrence: None)
  Receive Date: 20100510
  Receipt Date: 20100510
  Transmission Date: 20101027
  Serious: Yes (Hospitalization)
  Sender: FDA-Public Use
  Company Number: None

PATIENT
  Age: 66 Year
  Sex: Male
  Weight: 90.3 kg

DRUGS (1)
  1. SPIRONOLACTONE [Suspect]
     Indication: LIVER DISORDER
     Dosage: 50 MG BID PO
     Route: 048
     Dates: start: 20100412, end: 20100506

REACTIONS (1)
  - HYPERKALAEMIA [None]
